FAERS Safety Report 24125565 (Version 1)
Quarter: 2024Q3

REPORT INFORMATION
  Report Type: Spontaneous
  Country: US (occurrence: None)
  Receive Date: 20240722
  Receipt Date: 20240722
  Transmission Date: 20241016
  Serious: No
  Sender: Public
  Company Number: None

PATIENT
  Age: 38 Year

DRUGS (1)
  1. OCREVUS [Suspect]
     Active Substance: OCRELIZUMAB
     Indication: Multiple sclerosis
     Dates: start: 20240722

REACTIONS (3)
  - Pruritus [None]
  - Oropharyngeal pain [None]
  - Nasal congestion [None]

NARRATIVE: CASE EVENT DATE: 20240722
